FAERS Safety Report 7853379-2 (Version None)
Quarter: 2011Q3

REPORT INFORMATION
  Report Type: 
  Country: None (occurrence: None)
  Receive Date: 20110915
  Receipt Date: 20110705
  Transmission Date: 20111222
  Serious: Yes (Hospitalization)
  Sender: FDA-Public Use
  Company Number: 2011029123

PATIENT
  Sex: Female

DRUGS (1)
  1. PRIVIGEN [Suspect]
     Dosage: 40 G QD INTRAVENOUS (NOT OTHERWISE SPECIFIED)
     Route: 042
     Dates: start: 20110620, end: 20110624

REACTIONS (2)
  - ANAEMIA [None]
  - HAEMOLYSIS [None]
